FAERS Safety Report 8618130-7 (Version None)
Quarter: 2012Q3

REPORT INFORMATION
  Report Type: 
  Country: None (occurrence: None)
  Receive Date: 20120824
  Receipt Date: 20120815
  Transmission Date: 20120928
  Serious: Yes (Hospitalization, Disabling, Other)
  Sender: FDA-Public Use
  Company Number: US-009507513-1206USA04852

PATIENT

DRUGS (4)
  1. FOSAMAX [Suspect]
     Indication: OSTEOPOROSIS
     Dosage: 70 MG, QD
     Route: 048
     Dates: start: 20061101, end: 20080401
  2. FOSAMAX PLUS D [Suspect]
     Dosage: UNK
     Route: 048
     Dates: start: 20070116
  3. CHANTIX [Concomitant]
     Indication: TOBACCO ABUSE
  4. ZOCOR [Concomitant]
     Indication: BLOOD CHOLESTEROL INCREASED

REACTIONS (13)
  - STRESS FRACTURE [None]
  - HOSPITALISATION [None]
  - NERVOUS SYSTEM DISORDER [None]
  - REFLUX LARYNGITIS [None]
  - BACK PAIN [None]
  - OSTEOPOROSIS [None]
  - DYSPHAGIA [None]
  - FEMUR FRACTURE [None]
  - LOW TURNOVER OSTEOPATHY [None]
  - EYE IRRITATION [None]
  - INTRAMEDULLARY ROD INSERTION [None]
  - GASTROENTERITIS [None]
  - IRITIS [None]
